FAERS Safety Report 9350068 (Version 1)
Quarter: 2013Q2

REPORT INFORMATION
  Report Type: Spontaneous
  Country: US (occurrence: US)
  Receive Date: 20130615
  Receipt Date: 20130615
  Transmission Date: 20140414
  Serious: No
  Sender: FDA-Public Use
  Company Number: US-009507513-1306USA006087

PATIENT
  Sex: Male

DRUGS (1)
  1. SAPHRIS [Suspect]
     Dosage: 10 MG, UNK
     Route: 060

REACTIONS (1)
  - Parkinsonism [Not Recovered/Not Resolved]
